FAERS Safety Report 4755436-6 (Version None)
Quarter: 2005Q3

REPORT INFORMATION
  Report Type: 
  Country: None (occurrence: None)
  Receive Date: 20050826
  Receipt Date: 20050826
  Transmission Date: 20060218
  Serious: No
  Sender: FDA-Public Use
  Company Number: None

PATIENT
  Age: 72 Year
  Sex: Female

DRUGS (1)
  1. EFUDEX [Suspect]
     Dosage: CREAM

REACTIONS (3)
  - BLISTER [None]
  - ERYTHEMA [None]
  - SKIN DISORDER [None]
